FAERS Safety Report 15599441 (Version 2)
Quarter: 2018Q4

REPORT INFORMATION
  Report Type: Report from Study
  Country: CO (occurrence: CO)
  Receive Date: 20181108
  Receipt Date: 20181207
  Transmission Date: 20190205
  Serious: Yes (Hospitalization)
  Sender: FDA-Public Use
  Company Number: PHHY2018CO147899

PATIENT
  Age: 42 Year
  Sex: Male
  Weight: 84 kg

DRUGS (3)
  1. VOTRIENT [Suspect]
     Active Substance: PAZOPANIB HYDROCHLORIDE
     Indication: PANCREATIC CARCINOMA
  2. VOTRIENT [Suspect]
     Active Substance: PAZOPANIB HYDROCHLORIDE
     Indication: LUNG NEOPLASM MALIGNANT
     Dosage: 400 MG, BID
     Route: 048
     Dates: start: 20180901
  3. VOTRIENT [Suspect]
     Active Substance: PAZOPANIB HYDROCHLORIDE
     Indication: BONE CANCER

REACTIONS (7)
  - Blood pressure increased [Recovered/Resolved]
  - Pneumothorax [Recovered/Resolved]
  - Choking [Recovered/Resolved]
  - Sensitive skin [Recovered/Resolved]
  - Inappropriate schedule of product administration [Unknown]
  - Dyspnoea [Recovered/Resolved]
  - Hair colour changes [Recovered/Resolved]

NARRATIVE: CASE EVENT DATE: 20180920
